FAERS Safety Report 10917542 (Version 3)
Quarter: 2020Q2

REPORT INFORMATION
  Report Type: Report from Study
  Country: US (occurrence: US)
  Receive Date: 20150316
  Receipt Date: 20200402
  Transmission Date: 20200713
  Serious: Yes (Hospitalization, Disabling, Other)
  Sender: FDA-Public Use
  Company Number: US-SA-2014SA087922

PATIENT
  Age: 65 Year
  Sex: Male

DRUGS (3)
  1. TERIFLUNOMIDE. [Suspect]
     Active Substance: TERIFLUNOMIDE
     Dosage: 14 MG,QD
     Route: 048
     Dates: start: 20150316
  2. TERIFLUNOMIDE. [Suspect]
     Active Substance: TERIFLUNOMIDE
     Indication: MULTIPLE SCLEROSIS
     Dosage: 14 MG,QD
     Route: 048
     Dates: start: 20140602
  3. TERIFLUNOMIDE. [Suspect]
     Active Substance: TERIFLUNOMIDE
     Dosage: 14 MG,QD
     Route: 048
     Dates: start: 20170404, end: 2019

REACTIONS (22)
  - Vision blurred [Unknown]
  - Osteoarthritis [Not Recovered/Not Resolved]
  - Feeling abnormal [Recovered/Resolved]
  - Hypoacusis [Not Recovered/Not Resolved]
  - Weight decreased [Unknown]
  - Fall [Unknown]
  - Product dose omission [Unknown]
  - Coeliac disease [Not Recovered/Not Resolved]
  - Gait disturbance [Not Recovered/Not Resolved]
  - Neck surgery [Unknown]
  - Speech disorder [Not Recovered/Not Resolved]
  - Hyperglycaemia [Recovered/Resolved]
  - Rheumatoid arthritis [Not Recovered/Not Resolved]
  - Surgery [Unknown]
  - Fatigue [Unknown]
  - Unevaluable event [Unknown]
  - Myocardial infarction [Not Recovered/Not Resolved]
  - Feeling abnormal [Not Recovered/Not Resolved]
  - Vitamin D decreased [Unknown]
  - Type 1 diabetes mellitus [Not Recovered/Not Resolved]
  - Vitamin B12 decreased [Unknown]
  - Glycosylated haemoglobin increased [Recovered/Resolved]

NARRATIVE: CASE EVENT DATE: 201408
